FAERS Safety Report 16849080 (Version 2)
Quarter: 2020Q4

REPORT INFORMATION
  Report Type: Spontaneous
  Country: US (occurrence: US)
  Receive Date: 20190925
  Receipt Date: 20201023
  Transmission Date: 20210113
  Serious: Yes (Other)
  Sender: FDA-Public Use
  Company Number: US-GILEAD-2019-0429793

PATIENT
  Age: 40 Year
  Sex: Female
  Weight: 129.25 kg

DRUGS (17)
  1. ISENTRESS [Concomitant]
     Active Substance: RALTEGRAVIR POTASSIUM
  2. RETROVIR [Concomitant]
     Active Substance: ZIDOVUDINE
  3. NOVOLOG [Concomitant]
     Active Substance: INSULIN ASPART
  4. GENVOYA [Concomitant]
     Active Substance: COBICISTAT\ELVITEGRAVIR\EMTRICITABINE\TENOFOVIR ALAFENAMIDE FUMARATE
  5. NORVIR [Concomitant]
     Active Substance: RITONAVIR
  6. VIRAMUNE [Concomitant]
     Active Substance: NEVIRAPINE
  7. FISH OIL [Concomitant]
     Active Substance: FISH OIL
  8. RENA-VITE [Concomitant]
     Active Substance: ASCORBIC ACID\BIOTIN\CALCIUM PANTOTHENATE\CYANOCOBALAMIN\FOLIC ACID\NIACINAMIDE\PYRIDOXINE HYDROCHLORIDE\RIBOFLAVIN\THIAMINE MONONITRATE
  9. VIREAD [Suspect]
     Active Substance: TENOFOVIR DISOPROXIL FUMARATE
     Indication: HIV INFECTION
     Dosage: UNK
     Route: 048
     Dates: start: 2001, end: 2010
  10. EPIVIR [Concomitant]
     Active Substance: LAMIVUDINE
  11. METHOCARBAMOL. [Concomitant]
     Active Substance: METHOCARBAMOL
  12. COMBIVIR [Concomitant]
     Active Substance: LAMIVUDINE\ZIDOVUDINE
  13. GABAPENTIN. [Concomitant]
     Active Substance: GABAPENTIN
  14. REYATAZ [Concomitant]
     Active Substance: ATAZANAVIR SULFATE
  15. VIRACEPT [Concomitant]
     Active Substance: NELFINAVIR MESYLATE
  16. FENOFIBRATE. [Concomitant]
     Active Substance: FENOFIBRATE
  17. LEVEMIR [Concomitant]
     Active Substance: INSULIN DETEMIR

REACTIONS (12)
  - Economic problem [Not Recovered/Not Resolved]
  - Pain [Not Recovered/Not Resolved]
  - Depression [Not Recovered/Not Resolved]
  - End stage renal disease [Unknown]
  - Emotional distress [Not Recovered/Not Resolved]
  - Fatigue [Not Recovered/Not Resolved]
  - Quality of life decreased [Not Recovered/Not Resolved]
  - Anxiety [Not Recovered/Not Resolved]
  - Anhedonia [Not Recovered/Not Resolved]
  - Renal disorder [Unknown]
  - Renal failure [Not Recovered/Not Resolved]
  - Loss of personal independence in daily activities [Not Recovered/Not Resolved]

NARRATIVE: CASE EVENT DATE: 201010
